FAERS Safety Report 7249898-2 (Version None)
Quarter: 2011Q1

REPORT INFORMATION
  Report Type: 
  Country: None (occurrence: None)
  Receive Date: 20110128
  Receipt Date: 20100818
  Transmission Date: 20110831
  Serious: No
  Sender: FDA-Public Use
  Company Number: A0876528A

PATIENT
  Age: 55 Year
  Sex: Male

DRUGS (6)
  1. BUPROPION HCL [Suspect]
     Indication: DEPRESSION
     Dosage: 37.5MG PER DAY
     Route: 048
     Dates: start: 20100601, end: 20100816
  2. LAMOTRIGINE [Suspect]
     Indication: BIPOLAR DISORDER
     Dosage: 25MG ALTERNATE DAYS
     Route: 048
     Dates: start: 20100817
  3. LIPITOR [Concomitant]
  4. SONATA [Concomitant]
  5. PROTONIX [Concomitant]
  6. XOPENEX [Concomitant]

REACTIONS (5)
  - HEADACHE [None]
  - FATIGUE [None]
  - INSOMNIA [None]
  - FEELING HOT [None]
  - DIZZINESS [None]
